FAERS Safety Report 7458922-3 (Version None)
Quarter: 2011Q2

REPORT INFORMATION
  Report Type: 
  Country: None (occurrence: None)
  Receive Date: 20110426
  Receipt Date: 20110414
  Transmission Date: 20111010
  Serious: Yes (Hospitalization, Congenital Anomaly, Other)
  Sender: FDA-Public Use
  Company Number: GER/GER/11/0018025

PATIENT
  Sex: Male
  Weight: 2.34 kg

DRUGS (2)
  1. FLUOXETINE [Suspect]
     Indication: DEPRESSION
     Dosage: 5 MG, 1 D, TRANSPLACENTAL
     Route: 064
     Dates: start: 20090629, end: 20100216
  2. LEVOTHYROXINE SODIUM [Concomitant]

REACTIONS (13)
  - HYPOCALCAEMIA [None]
  - ATRIAL SEPTAL DEFECT [None]
  - FEEDING DISORDER NEONATAL [None]
  - PREMATURE RUPTURE OF MEMBRANES [None]
  - PREMATURE BABY [None]
  - HYPOGLYCAEMIA NEONATAL [None]
  - NEONATAL RESPIRATORY DISTRESS SYNDROME [None]
  - HYPERBILIRUBINAEMIA NEONATAL [None]
  - RETINOPATHY OF PREMATURITY [None]
  - MATERNAL DRUGS AFFECTING FOETUS [None]
  - ANAEMIA NEONATAL [None]
  - MYOCLONUS [None]
  - PULMONARY ARTERY STENOSIS CONGENITAL [None]
